FAERS Safety Report 4749748-X (Version None)
Quarter: 2005Q3

REPORT INFORMATION
  Report Type: 
  Country: None (occurrence: None)
  Receive Date: 20050822
  Receipt Date: 20041028
  Transmission Date: 20060218
  Serious: Yes (Other)
  Sender: FDA-Public Use
  Company Number: 200418375US

PATIENT
  Sex: Female

DRUGS (5)
  1. LOVENOX [Suspect]
     Indication: PROPHYLAXIS
     Dates: start: 20040707, end: 20040801
  2. VITAMIN B-12 [Concomitant]
     Dosage: DOSE: NOT PROVIDED
  3. ASCORBIC ACID [Concomitant]
     Dosage: DOSE: NOT PROVIDED
  4. GLUCOSAMINE [Concomitant]
     Dosage: DOSE: NOT PROVIDED
  5. NEURONTIN [Concomitant]
     Dosage: DOSE: NOT PROVIDED

REACTIONS (4)
  - HAEMATOMA [None]
  - HYPOAESTHESIA [None]
  - NERVE COMPRESSION [None]
  - THROMBOSIS [None]
